FAERS Safety Report 22070502 (Version 2)
Quarter: 2023Q2

REPORT INFORMATION
  Report Type: Spontaneous
  Country: US (occurrence: US)
  Receive Date: 20230307
  Receipt Date: 20230412
  Transmission Date: 20230722
  Serious: Yes (Hospitalization)
  Sender: FDA-Public Use
  Company Number: US-BRISTOL-MYERS SQUIBB COMPANY-2023-030226

PATIENT
  Age: 36 Year
  Sex: Male
  Weight: 116.57 kg

DRUGS (1)
  1. REVLIMID [Suspect]
     Active Substance: LENALIDOMIDE
     Indication: Diffuse large B-cell lymphoma
     Dosage: DAILY ON DAYS 1-21 OF 28 DAYS
     Route: 048
     Dates: start: 20221208

REACTIONS (2)
  - COVID-19 [Recovered/Resolved]
  - Off label use [Unknown]
